FAERS Safety Report 6080604-3 (Version None)
Quarter: 2009Q1

REPORT INFORMATION
  Report Type: 
  Country: None (occurrence: None)
  Receive Date: 20090217
  Receipt Date: 20090207
  Transmission Date: 20090719
  Serious: Yes (Hospitalization)
  Sender: FDA-Public Use
  Company Number: US-AMGEN-QUU332715

PATIENT
  Sex: Female

DRUGS (2)
  1. ENBREL [Suspect]
     Indication: PSORIATIC ARTHROPATHY
     Route: 058
     Dates: start: 20060125
  2. METHOTREXATE [Concomitant]
     Route: 048
     Dates: start: 20060125

REACTIONS (3)
  - DEVICE FAILURE [None]
  - EPIPHYSEAL DISORDER [None]
  - PSORIATIC ARTHROPATHY [None]
